FAERS Safety Report 4447934-X (Version None)
Quarter: 2004Q3

REPORT INFORMATION
  Report Type: 
  Country: None (occurrence: None)
  Receive Date: 20040726
  Receipt Date: 20040401
  Transmission Date: 20050211
  Serious: Yes (Hospitalization)
  Sender: FDA-Public Use
  Company Number: WSDF_00387

PATIENT
  Age: 41 Year
  Sex: Female

DRUGS (3)
  1. WINRHO SDF [Suspect]
     Indication: IDIOPATHIC THROMBOCYTOPENIC PURPURA
     Dates: start: 20040326, end: 20040326
  2. PREDNISONE [Concomitant]
  3. DANAZOL [Concomitant]

REACTIONS (2)
  - INTRAVASCULAR HAEMOLYSIS [None]
  - RENAL FAILURE ACUTE [None]
